FAERS Safety Report 7561580-0 (Version None)
Quarter: 2011Q2

REPORT INFORMATION
  Report Type: 
  Country: None (occurrence: None)
  Receive Date: 20110621
  Receipt Date: 20100830
  Transmission Date: 20111010
  Serious: No
  Sender: FDA-Public Use
  Company Number: US-ASTRAZENECA-2010SE28846

PATIENT
  Age: 70 Year
  Sex: Female
  Weight: 86.2 kg

DRUGS (8)
  1. LIPITOR [Concomitant]
  2. FISH OIL [Concomitant]
  3. GLYBURIDE [Concomitant]
  4. OMEPRAZOLE [Concomitant]
  5. METFORMIN HCL [Concomitant]
  6. ASPIRIN [Concomitant]
  7. PULMICORT FLEXHALER [Suspect]
     Indication: ASTHMA
     Route: 055
     Dates: start: 20090401
  8. CITRICEL [Concomitant]

REACTIONS (1)
  - CHEST PAIN [None]
